FAERS Safety Report 10957729 (Version 5)
Quarter: 2015Q2

REPORT INFORMATION
  Report Type: Spontaneous
  Country: JP (occurrence: JP)
  Receive Date: 20150326
  Receipt Date: 20150605
  Transmission Date: 20150821
  Serious: Yes (Life-Threatening, Other)
  Sender: FDA-Public Use
  Company Number: JP-PFIZER INC-2015078718

PATIENT
  Age: 55 Year
  Sex: Male

DRUGS (12)
  1. FOSPHENYTOIN SODIUM. [Suspect]
     Active Substance: FOSPHENYTOIN SODIUM
     Indication: EPILEPSY
     Dosage: 750 MG, 1X/DAY
     Route: 042
     Dates: start: 20150212, end: 20150212
  2. LAC-B [Concomitant]
     Active Substance: BIFIDOBACTERIUM SPP.
     Dosage: 2 G, 3X/DAY
  3. LODOPIN [Concomitant]
     Active Substance: ZOTEPINE
     Dosage: 0.3 G, ONCE DAILY PER ONE DAY AS NEEDED
  4. FOSPHENYTOIN SODIUM. [Suspect]
     Active Substance: FOSPHENYTOIN SODIUM
     Dosage: 500 MG, AS NEEDED (500 MG X 1/ONE DAY AS NEEDED)
     Route: 042
     Dates: start: 20150216, end: 20150218
  5. VALPROATE SODIUM. [Concomitant]
     Active Substance: VALPROATE SODIUM
     Dosage: 1.4 G, 3X/DAY (40%)
  6. ALEVIATIN [Concomitant]
     Active Substance: PHENYTOIN SODIUM
     Dosage: 2 G, 1X/DAY
     Dates: start: 20150220
  7. FOSPHENYTOIN SODIUM. [Suspect]
     Active Substance: FOSPHENYTOIN SODIUM
     Dosage: 500 MG, 1X/DAY
     Route: 042
     Dates: start: 20150212, end: 20150212
  8. ALEVIATIN [Concomitant]
     Active Substance: PHENYTOIN SODIUM
     Dosage: 1.5 G, 3X/DAY
     Dates: end: 20150219
  9. EURODIN [Concomitant]
     Active Substance: ESTAZOLAM
     Dosage: 1 MG, 1X/DAY
  10. TASMOLIN [Concomitant]
     Active Substance: BIPERIDEN
     Dosage: 0.3 G, 1X/DAY
  11. GOODMIN [Concomitant]
     Active Substance: BROTIZOLAM
     Dosage: 0.25 MG, ONCE DAILY AS NEEDED
  12. FOSPHENYTOIN SODIUM. [Suspect]
     Active Substance: FOSPHENYTOIN SODIUM
     Dosage: 225 MG, AS NEEDED (225 MG X 1/ONE DAY AS NEEDED)
     Route: 042
     Dates: start: 20150213, end: 20150215

REACTIONS (4)
  - Cardiac arrest [Recovering/Resolving]
  - Torsade de pointes [Recovered/Resolved]
  - Ventricular fibrillation [Recovered/Resolved]
  - Drug ineffective [Unknown]

NARRATIVE: CASE EVENT DATE: 201502
